FAERS Safety Report 5611322-0 (Version None)
Quarter: 2008Q1

REPORT INFORMATION
  Report Type: 
  Country: None (occurrence: None)
  Receive Date: 20080201
  Receipt Date: 20080121
  Transmission Date: 20080703
  Serious: Yes (Life-Threatening, Other)
  Sender: FDA-Public Use
  Company Number: PT-PFIZER INC-2007108926

PATIENT
  Age: 44 Year
  Sex: Male

DRUGS (1)
  1. CHANTIX [Suspect]
     Indication: EX-SMOKER
     Route: 048

REACTIONS (9)
  - ADVERSE REACTION [None]
  - CONFUSIONAL STATE [None]
  - DISORIENTATION [None]
  - HEART RATE INCREASED [None]
  - INSOMNIA [None]
  - MARITAL PROBLEM [None]
  - SMOKER [None]
  - SUICIDAL IDEATION [None]
  - SUICIDE ATTEMPT [None]
